FAERS Safety Report 18617733 (Version 2)
Quarter: 2020Q4

REPORT INFORMATION
  Report Type: Spontaneous
  Country: US (occurrence: US)
  Receive Date: 20201215
  Receipt Date: 20201218
  Transmission Date: 20210114
  Serious: Yes (Death)
  Sender: FDA-Public Use
  Company Number: US-ROCHE-2733298

PATIENT
  Age: 52 Year
  Sex: Female

DRUGS (2)
  1. ZELBORAF [Suspect]
     Active Substance: VEMURAFENIB
     Indication: PRODUCT USED FOR UNKNOWN INDICATION
     Dosage: 4 TABS;ONGOING:NO
     Route: 048
     Dates: start: 20201124, end: 20201214
  2. COTELLIC [Suspect]
     Active Substance: COBIMETINIB
     Indication: PRODUCT USED FOR UNKNOWN INDICATION
     Dosage: ONGOING:NO
     Route: 048
     Dates: start: 20201124, end: 20201214

REACTIONS (1)
  - Death [Fatal]

NARRATIVE: CASE EVENT DATE: 20201214
